FAERS Safety Report 20063594 (Version 1)
Quarter: 2021Q4

REPORT INFORMATION
  Report Type: Spontaneous
  Country: US (occurrence: US)
  Receive Date: 20211112
  Receipt Date: 20211112
  Transmission Date: 20220303
  Serious: Yes (Other)
  Sender: FDA-Public Use
  Company Number: US-NOVARTISPH-NVSC2021US257243

PATIENT
  Age: 37 Year
  Sex: Female

DRUGS (2)
  1. RANITIDINE [Suspect]
     Active Substance: RANITIDINE
     Indication: Gastric disorder
     Dosage: UNK, QD
     Route: 065
     Dates: end: 201912
  2. RANITIDINE [Suspect]
     Active Substance: RANITIDINE
     Indication: Gastric disorder
     Dosage: UNK, QD
     Route: 065
     Dates: end: 201912

REACTIONS (2)
  - Pancreatic carcinoma [Recovering/Resolving]
  - Product use in unapproved indication [Unknown]

NARRATIVE: CASE EVENT DATE: 20080201
